FAERS Safety Report 6749904-5 (Version None)
Quarter: 2010Q2

REPORT INFORMATION
  Report Type: 
  Country: None (occurrence: None)
  Receive Date: 20100601
  Receipt Date: 20100526
  Transmission Date: 20101027
  Serious: Yes (Death)
  Sender: FDA-Public Use
  Company Number: DE-BRISTOL-MYERS SQUIBB COMPANY-15123409

PATIENT
  Age: 69 Year
  Sex: Male

DRUGS (1)
  1. AMPHOTERICIN B [Suspect]

REACTIONS (1)
  - DRUG INEFFECTIVE [None]
